FAERS Safety Report 8510105-1 (Version None)
Quarter: 2012Q3

REPORT INFORMATION
  Report Type: 
  Country: None (occurrence: None)
  Receive Date: 20120713
  Receipt Date: 20120711
  Transmission Date: 20120928
  Serious: No
  Sender: FDA-Public Use
  Company Number: US-PFIZER INC-2012126751

PATIENT
  Sex: Male
  Weight: 74.83 kg

DRUGS (3)
  1. SIMVASTATIN [Interacting]
     Indication: BLOOD CHOLESTEROL INCREASED
     Dosage: 20 MG, 1X/DAY
  2. PRONUTRIENTS FRUIT + VEGGIE [Suspect]
     Indication: ROUTINE HEALTH MAINTENANCE
     Dosage: 2 TABLETS
     Route: 048
     Dates: start: 20120101
  3. AMLODIPINE BESYLATE [Interacting]
     Indication: HYPERTENSION
     Dosage: 10 MG, 1X/DAY

REACTIONS (5)
  - PAIN IN EXTREMITY [None]
  - DRUG INTERACTION [None]
  - MUSCLE TIGHTNESS [None]
  - MYALGIA [None]
  - ARTHROPATHY [None]
